FAERS Safety Report 7204372-4 (Version None)
Quarter: 2010Q4

REPORT INFORMATION
  Report Type: 
  Country: None (occurrence: None)
  Receive Date: 20101230
  Receipt Date: 20101221
  Transmission Date: 20110411
  Serious: Yes (Other)
  Sender: FDA-Public Use
  Company Number: US-AMGEN-USASP2010010454

PATIENT

DRUGS (2)
  1. PROLIA [Suspect]
     Indication: OSTEOPOROSIS POSTMENOPAUSAL
     Dosage: 60 MG, Q6MO
     Dates: start: 20101215
  2. PROLIA [Suspect]
     Dates: start: 20101215

REACTIONS (7)
  - ABDOMINAL PAIN [None]
  - DYSURIA [None]
  - EYE SWELLING [None]
  - HEADACHE [None]
  - MUSCLE SPASMS [None]
  - PAIN IN JAW [None]
  - POLLAKIURIA [None]
